FAERS Safety Report 7903082-5 (Version None)
Quarter: 2011Q4

REPORT INFORMATION
  Report Type: 
  Country: None (occurrence: None)
  Receive Date: 20111107
  Receipt Date: 20080125
  Transmission Date: 20120403
  Serious: Yes (Death)
  Sender: FDA-Public Use
  Company Number: 2008SP001980

PATIENT
  Age: 61 Year
  Sex: Male
  Weight: 65 kg

DRUGS (9)
  1. TEMODAL [Suspect]
     Indication: GLIOBLASTOMA MULTIFORME
     Dosage: SEE IMAGE
     Route: 048
     Dates: start: 20070403, end: 20070407
  2. TEMODAL [Suspect]
     Indication: GLIOBLASTOMA MULTIFORME
     Dosage: SEE IMAGE
     Route: 048
     Dates: start: 20070710, end: 20070714
  3. TEMODAL [Suspect]
     Indication: GLIOBLASTOMA MULTIFORME
     Dosage: SEE IMAGE
     Route: 048
     Dates: start: 20070807, end: 20070811
  4. TEMODAL [Suspect]
     Indication: GLIOBLASTOMA MULTIFORME
     Dosage: SEE IMAGE
     Route: 048
     Dates: start: 20070612, end: 20070616
  5. TEMODAL [Suspect]
     Indication: GLIOBLASTOMA MULTIFORME
     Dosage: SEE IMAGE
     Route: 048
     Dates: start: 20070508, end: 20070512
  6. TEMODAL [Suspect]
     Indication: GLIOBLASTOMA MULTIFORME
     Dosage: SEE IMAGE
     Route: 048
     Dates: start: 20070904, end: 20070908
  7. TEMODAL [Suspect]
     Indication: GLIOBLASTOMA MULTIFORME
     Dosage: SEE IMAGE
     Route: 048
     Dates: start: 20070227, end: 20070303
  8. TEMODAL [Suspect]
     Indication: GLIOBLASTOMA MULTIFORME
     Dosage: SEE IMAGE
     Route: 048
     Dates: start: 20061201, end: 20070117
  9. FLUNASE [Concomitant]

REACTIONS (4)
  - PNEUMONIA [None]
  - NASOPHARYNGITIS [None]
  - GLIOBLASTOMA MULTIFORME [None]
  - DISEASE PROGRESSION [None]
